FAERS Safety Report 5990023-3 (Version None)
Quarter: 2008Q4

REPORT INFORMATION
  Report Type: 
  Country: None (occurrence: None)
  Receive Date: 20081209
  Receipt Date: 20081209
  Transmission Date: 20090506
  Serious: No
  Sender: FDA-Public Use
  Company Number: None

PATIENT
  Age: 83 Year
  Sex: Male
  Weight: 88.905 kg

DRUGS (1)
  1. LEVOFLOXACIN [Suspect]
     Indication: BILIARY SEPSIS
     Dosage: 250 MG TID PO
     Route: 048
     Dates: start: 20081008, end: 20081018

REACTIONS (4)
  - ARTHRALGIA [None]
  - JOINT SWELLING [None]
  - TENDERNESS [None]
  - TENDON DISORDER [None]
